FAERS Safety Report 5429285-X (Version None)
Quarter: 2007Q3

REPORT INFORMATION
  Report Type: 
  Country: None (occurrence: None)
  Receive Date: 20070827
  Receipt Date: 20070827
  Transmission Date: 20080115
  Serious: No
  Sender: FDA-Public Use
  Company Number: None

PATIENT
  Sex: Female
  Weight: 69 kg

DRUGS (2)
  1. CARBOPLATIN [Suspect]
     Dosage: 463 MG
  2. TAXOL [Suspect]
     Dosage: 394 MG

REACTIONS (1)
  - BLOOD POTASSIUM DECREASED [None]
